FAERS Safety Report 8925741 (Version 4)
Quarter: 2013Q2

REPORT INFORMATION
  Report Type: Spontaneous
  Country: CA (occurrence: CA)
  Receive Date: 20121126
  Receipt Date: 20130421
  Transmission Date: 20140414
  Serious: Yes (Death, Other)
  Sender: FDA-Public Use
  Company Number: CA-B.I. PHARMACEUTICALS,INC./RIDGEFIELD-2012-BP-26000BP

PATIENT
  Sex: Male

DRUGS (1)
  1. MIRAPEX [Suspect]
     Indication: PARKINSON^S DISEASE
     Dates: start: 20000518, end: 20030409

REACTIONS (6)
  - Completed suicide [Fatal]
  - Intentional overdose [Unknown]
  - Suicide attempt [Unknown]
  - Depression [Unknown]
  - Hypersexuality [Unknown]
  - Suicidal ideation [Unknown]
